FAERS Safety Report 9335555 (Version 1)
Quarter: 2013Q2

REPORT INFORMATION
  Report Type: Spontaneous
  Country: NL (occurrence: NL)
  Receive Date: 20130605
  Receipt Date: 20130605
  Transmission Date: 20140414
  Serious: Yes (Other)
  Sender: FDA-Public Use
  Company Number: NL-GLAXOSMITHKLINE-B0896880A

PATIENT
  Age: 0 Day
  Sex: Male
  Weight: 3 kg

DRUGS (1)
  1. LAMOTRIGINE [Suspect]
     Indication: EPILEPSY
     Route: 064
     Dates: start: 20040513

REACTIONS (5)
  - Congenital tongue anomaly [Unknown]
  - Patent ductus arteriosus [Recovered/Resolved]
  - Feeding disorder neonatal [Recovered/Resolved]
  - Respiratory distress [Recovered/Resolved]
  - Foetal exposure during pregnancy [Unknown]
